FAERS Safety Report 4403190-X (Version None)
Quarter: 2004Q3

REPORT INFORMATION
  Report Type: 
  Country: None (occurrence: None)
  Receive Date: 20040721
  Receipt Date: 20040310
  Transmission Date: 20050211
  Serious: No
  Sender: FDA-Public Use
  Company Number: US-GLAXOSMITHKLINE-A0502144A

PATIENT
  Age: 60 Year
  Sex: Male

DRUGS (18)
  1. IMITREX [Suspect]
     Indication: MIGRAINE
     Dosage: 50MG PER DAY
     Route: 048
     Dates: start: 20040308
  2. IBUPROFEN [Concomitant]
  3. PRAVACHOL [Concomitant]
  4. METFORMIN HCL [Concomitant]
  5. ISOSORBIDE [Concomitant]
  6. OMEPRAZOLE [Concomitant]
  7. DIGOXIN [Concomitant]
  8. NOVOLIN 70/30 [Concomitant]
  9. INSULIN [Concomitant]
  10. PRILOSEC [Concomitant]
  11. MONOPRIL [Concomitant]
  12. NITROSTAT [Concomitant]
  13. INHALERS [Concomitant]
  14. VERAPAMIL [Concomitant]
  15. FUROSEMIDE [Concomitant]
  16. DIOVAN [Concomitant]
  17. HYDROXYZINE [Concomitant]
  18. NAPROXEN [Concomitant]

REACTIONS (2)
  - CHEST PAIN [None]
  - EPISTAXIS [None]
